FAERS Safety Report 24294335 (Version 4)
Quarter: 2024Q4

REPORT INFORMATION
  Report Type: Spontaneous
  Country: US (occurrence: US)
  Receive Date: 20240906
  Receipt Date: 20241106
  Transmission Date: 20250115
  Serious: Yes (Hospitalization, Other)
  Sender: BRISTOL-MYERS SQUIBB COMPANY
  Company Number: US-BRISTOL-MYERS SQUIBB COMPANY-2024-141507

PATIENT
  Age: 70 Year
  Sex: Female
  Weight: 57.2 kg

DRUGS (8)
  1. APIXABAN [Suspect]
     Active Substance: APIXABAN
     Indication: Thrombosis prophylaxis
     Route: 048
     Dates: start: 20230817, end: 20240815
  2. APIXABAN [Suspect]
     Active Substance: APIXABAN
     Indication: Hypertension
     Dates: start: 202408
  3. DISITAMAB VEDOTIN [Suspect]
     Active Substance: DISITAMAB VEDOTIN
     Indication: Non-small cell lung cancer
     Route: 041
     Dates: start: 20240813, end: 20240813
  4. LORAZEPAM [Suspect]
     Active Substance: LORAZEPAM
     Indication: Anxiety
     Route: 048
     Dates: start: 20211103
  5. LOSARTAN [Suspect]
     Active Substance: LOSARTAN
     Indication: Hypertension
     Route: 048
     Dates: start: 20211103, end: 20240815
  6. LOSARTAN [Suspect]
     Active Substance: LOSARTAN
  7. ATORVASTATIN [Suspect]
     Active Substance: ATORVASTATIN
     Indication: Cerebrovascular accident
     Route: 048
     Dates: start: 20240127
  8. ENOXAPARIN [Suspect]
     Active Substance: ENOXAPARIN
     Indication: Thrombosis prophylaxis
     Dosage: THERAPY NOT ONGOING
     Route: 058
     Dates: start: 20240816, end: 20240816

REACTIONS (2)
  - Splenic haematoma [Recovered/Resolved]
  - Off label use [Unknown]

NARRATIVE: CASE EVENT DATE: 20240813
